FAERS Safety Report 6716529-7 (Version None)
Quarter: 2010Q2

REPORT INFORMATION
  Report Type: 
  Country: None (occurrence: None)
  Receive Date: 20100507
  Receipt Date: 20100503
  Transmission Date: 20101027
  Serious: Yes (Other)
  Sender: FDA-Public Use
  Company Number: US-BAYER-201015042BCC

PATIENT
  Sex: Male

DRUGS (3)
  1. ASPIRIN [Suspect]
     Indication: DRUG USE FOR UNKNOWN INDICATION
     Route: 065
     Dates: start: 20090901
  2. ASPIRIN [Suspect]
     Route: 065
     Dates: start: 20100201
  3. ZOLOFT [Concomitant]
     Indication: DEPRESSION
     Dates: start: 20090901

REACTIONS (4)
  - BLOOD URINE PRESENT [None]
  - HAEMATURIA [None]
  - HAEMORRHAGE URINARY TRACT [None]
  - RENAL HAEMORRHAGE [None]
